FAERS Safety Report 5151073-2 (Version None)
Quarter: 2006Q4

REPORT INFORMATION
  Report Type: 
  Country: None (occurrence: None)
  Receive Date: 20061115
  Receipt Date: 20061113
  Transmission Date: 20070319
  Serious: Yes (Death, Hospitalization, Disabling)
  Sender: FDA-Public Use
  Company Number: PHBS2006NL17556

PATIENT
  Age: 43 Year
  Sex: Male

DRUGS (7)
  1. BISACODYL [Concomitant]
     Dosage: 10 MG, QD
  2. BUMETANIDE [Concomitant]
     Dosage: 2.5 MG, QD
  3. PERINDOPRIL ERBUMINE [Concomitant]
     Dosage: 2 MG, QD
  4. FERROFUMARAT [Concomitant]
     Dosage: 400 MG, QD
  5. PANTOZOL [Concomitant]
     Dosage: 40 MG, QD
  6. SPIRONOLACTONE [Concomitant]
     Dosage: 25 MG, QD
  7. LEPONEX [Suspect]
     Indication: PSYCHOTIC DISORDER
     Dosage: 300 MG/D
     Route: 048
     Dates: start: 19990101

REACTIONS (2)
  - CARDIOMYOPATHY [None]
  - RIGHT VENTRICULAR FAILURE [None]
